FAERS Safety Report 8529615-6 (Version None)
Quarter: 2012Q3

REPORT INFORMATION
  Report Type: 
  Country: None (occurrence: None)
  Receive Date: 20120723
  Receipt Date: 20120629
  Transmission Date: 20120928
  Serious: Yes (Life-Threatening, Hospitalization, Other)
  Sender: FDA-Public Use
  Company Number: HR-SANOFI-AVENTIS-2010SA024051

PATIENT
  Age: 70 Year
  Sex: Male

DRUGS (9)
  1. FOLIC ACID [Concomitant]
     Dosage: 5.0 (NOS)
  2. OPTIPEN [Suspect]
  3. MOXONIDINE [Concomitant]
     Dosage: 0.2 (NOS)
  4. ATORVASTATIN [Concomitant]
     Dosage: 40(NOS)
  5. LANTUS [Suspect]
     Route: 058
     Dates: start: 20031222
  6. AMLODIPINE BESYLATE [Concomitant]
     Dosage: 15.0 (NOS)
  7. IBUPROFEN [Concomitant]
     Indication: PAIN
     Dosage: 120 (NOS)
  8. LUPOCET [Concomitant]
     Indication: PAIN
     Dosage: 1500 (NOS)
  9. OMEGA-3 POLYUNSATURATED FATTY ACID [Suspect]
     Dates: start: 20040216, end: 20090818

REACTIONS (1)
  - NON-SMALL CELL LUNG CANCER [None]
